FAERS Safety Report 6278721-8 (Version None)
Quarter: 2009Q3

REPORT INFORMATION
  Report Type: 
  Country: None (occurrence: None)
  Receive Date: 20090721
  Receipt Date: 20090708
  Transmission Date: 20100115
  Serious: Yes (Other)
  Sender: FDA-Public Use
  Company Number: 2009-199082-NL

PATIENT
  Age: 16 Year
  Sex: Female
  Weight: 92 kg

DRUGS (5)
  1. IMPLANON [Suspect]
     Dates: start: 20020101
  2. ENOXAPARIN SODIUM [Concomitant]
  3. ACETAMINOPHEN W/ CODEINE [Concomitant]
  4. MOBIC [Concomitant]
  5. PANAMAX [Concomitant]

REACTIONS (11)
  - ABORTION INDUCED [None]
  - ABORTION SPONTANEOUS [None]
  - CAESAREAN SECTION [None]
  - COAGULOPATHY [None]
  - DEVICE MIGRATION [None]
  - PREGNANCY TEST POSITIVE [None]
  - PREGNANCY WITH IMPLANT CONTRACEPTIVE [None]
  - PREMATURE LABOUR [None]
  - PREMATURE SEPARATION OF PLACENTA [None]
  - STRESS [None]
  - VAGINAL HAEMORRHAGE [None]
